FAERS Safety Report 5207245-1 (Version None)
Quarter: 2007Q1

REPORT INFORMATION
  Report Type: 
  Country: None (occurrence: None)
  Receive Date: 20070112
  Receipt Date: 20061220
  Transmission Date: 20070707
  Serious: Yes (Hospitalization)
  Sender: FDA-Public Use
  Company Number: DE-BRISTOL-MYERS SQUIBB COMPANY-13616727

PATIENT
  Age: 70 Year
  Sex: Male
  Weight: 115 kg

DRUGS (4)
  1. CISPLATIN [Suspect]
     Indication: NON-SMALL CELL LUNG CANCER
     Dates: start: 20060927, end: 20061107
  2. PEMETREXED DISODIUM [Suspect]
     Indication: NON-SMALL CELL LUNG CANCER
     Dates: start: 20060927, end: 20061107
  3. LAFOL [Concomitant]
     Dates: start: 20060919
  4. DEXAMETHASONE [Concomitant]
     Dates: start: 20060926, end: 20061023

REACTIONS (5)
  - CONFUSIONAL STATE [None]
  - DELUSIONAL DISORDER, PERSECUTORY TYPE [None]
  - PSYCHOTIC DISORDER [None]
  - RESTLESSNESS [None]
  - VISUAL DISTURBANCE [None]
